FAERS Safety Report 7700432-X (Version None)
Quarter: 2011Q3

REPORT INFORMATION
  Report Type: 
  Country: None (occurrence: None)
  Receive Date: 20110816
  Receipt Date: 20110809
  Transmission Date: 20111222
  Serious: Yes (Death)
  Sender: FDA-Public Use
  Company Number: DSA_47029_2011

PATIENT
  Sex: Female
  Weight: 43.0917 kg

DRUGS (8)
  1. XENAZINE [Suspect]
     Indication: HUNTINGTON'S DISEASE
     Dosage: SEE IMAGE
     Route: 048
     Dates: end: 20100701
  2. XENAZINE [Suspect]
     Indication: HUNTINGTON'S DISEASE
     Dosage: SEE IMAGE
     Route: 048
     Dates: start: 20110214
  3. XENAZINE [Suspect]
     Indication: HUNTINGTON'S DISEASE
     Dosage: SEE IMAGE
     Route: 048
     Dates: start: 20100701, end: 20110213
  4. XENAZINE [Suspect]
     Indication: HUNTINGTON'S DISEASE
     Dosage: SEE IMAGE
     Route: 048
     Dates: start: 20090101
  5. ZANTAC [Concomitant]
  6. VITAMIN D [Concomitant]
  7. B12 /00056201/ [Concomitant]
  8. MELOXICAM [Concomitant]

REACTIONS (30)
  - DISEASE COMPLICATION [None]
  - PAIN IN EXTREMITY [None]
  - VOMITING [None]
  - CHOKING SENSATION [None]
  - DYSTONIA [None]
  - DYSPHAGIA [None]
  - BALANCE DISORDER [None]
  - CHRONIC OBSTRUCTIVE PULMONARY DISEASE [None]
  - BLOOD PRESSURE DECREASED [None]
  - CONTUSION [None]
  - DRUG EFFECT DECREASED [None]
  - WEIGHT DECREASED [None]
  - CHOREA [None]
  - GRIMACING [None]
  - TONGUE DRY [None]
  - CARDIAC FAILURE CONGESTIVE [None]
  - CONDITION AGGRAVATED [None]
  - DYSKINESIA [None]
  - MUSCLE TIGHTNESS [None]
  - INFLUENZA [None]
  - OTORRHOEA [None]
  - JOINT RANGE OF MOTION DECREASED [None]
  - ARTHRALGIA [None]
  - NAUSEA [None]
  - SYNCOPE [None]
  - GRUNTING [None]
  - DYSARTHRIA [None]
  - CHOKING [None]
  - MUSCLE ATROPHY [None]
  - TONGUE DISORDER [None]
